FAERS Safety Report 8974158 (Version 1)
Quarter: 2012Q4

REPORT INFORMATION
  Report Type: Spontaneous
  Country: US (occurrence: None)
  Receive Date: 20121213
  Receipt Date: 20121213
  Transmission Date: 20130627
  Serious: Yes (Hospitalization)
  Sender: FDA-Public Use
  Company Number: None

PATIENT
  Age: 82 Year
  Sex: Male

DRUGS (2)
  1. WARFARIN [Suspect]
     Dates: end: 20120904
  2. ALTERNA [Suspect]
     Dosage: 2 MG ALTERNA
     Dates: end: 20120904

REACTIONS (2)
  - Asthenia [None]
  - Dyspnoea [None]
